FAERS Safety Report 7041678-6 (Version None)
Quarter: 2010Q3

REPORT INFORMATION
  Report Type: 
  Country: None (occurrence: None)
  Receive Date: 20100929
  Receipt Date: 20100824
  Transmission Date: 20110219
  Serious: No
  Sender: FDA-Public Use
  Company Number: US-WYE-H17155410

PATIENT
  Age: 64 Year
  Sex: Male
  Weight: 113.5 kg

DRUGS (10)
  1. PRISTIQ [Suspect]
     Indication: DEPRESSION
     Dosage: 50 MG 1X PER 1 DAY, ORAL
     Route: 048
     Dates: start: 20100804
  2. ASPIRIN [Suspect]
  3. BYSTOLIC [Suspect]
     Dosage: 5 MG, FREQUENCY NOT PROVIDED
  4. CARDURA XL [Suspect]
     Dosage: 2 MG 1X PER 1 DAY
  5. HYDROCHLOROTHIAZIDE [Suspect]
     Dosage: 25 MG 1X PER 1 DAY
  6. MICARDIS [Suspect]
     Dosage: 80 MG, FREQUENCY NOT SPECIFIED
  7. NORCO [Suspect]
     Indication: PAIN
     Dosage: 10/325 MG, 1 TO 2 TABLETS
  8. NORVASC [Suspect]
     Dosage: 10 MG 1X PER 1 DAY
  9. TOVIAZ [Suspect]
     Indication: BLADDER DISORDER
     Dosage: 8 MG 1X PER 1 DAY
     Dates: start: 20100901
  10. XANAX [Suspect]
     Dosage: 1 MG 1X PER 1 DAY

REACTIONS (6)
  - DRUG INEFFECTIVE [None]
  - DRUG INTERACTION [None]
  - DRY MOUTH [None]
  - DYSPHAGIA [None]
  - URINARY HESITATION [None]
  - VISION BLURRED [None]
